FAERS Safety Report 26180439 (Version 1)
Quarter: 2025Q4

REPORT INFORMATION
  Report Type: Spontaneous
  Country: US (occurrence: US)
  Receive Date: 20251219
  Receipt Date: 20251219
  Transmission Date: 20260118
  Serious: Yes (Hospitalization, Other)
  Sender: BLUEPRINT MEDICINES
  Company Number: US-Blueprint Medicines Corporation-2025-AER-02715

PATIENT
  Age: 74 Year
  Sex: Male

DRUGS (6)
  1. AYVAKIT [Suspect]
     Active Substance: AVAPRITINIB
     Indication: Advanced systemic mastocytosis
     Route: 065
     Dates: start: 202301
  2. AYVAKIT [Suspect]
     Active Substance: AVAPRITINIB
     Indication: Malignant histiocytosis
  3. AYVAKIT [Suspect]
     Active Substance: AVAPRITINIB
     Indication: Neoplasm malignant
  4. JARDIANCE [Concomitant]
     Active Substance: EMPAGLIFLOZIN
     Indication: Product used for unknown indication
     Route: 065
  5. TORSEMIDE [Concomitant]
     Active Substance: TORSEMIDE
     Indication: Product used for unknown indication
     Route: 065
  6. SPIRONOLACTONE [Concomitant]
     Active Substance: SPIRONOLACTONE
     Indication: Product used for unknown indication
     Route: 065

REACTIONS (3)
  - Urinary tract infection [Unknown]
  - Pneumonia [Unknown]
  - Peripheral swelling [Unknown]
